FAERS Safety Report 12244697 (Version 1)
Quarter: 2016Q2

REPORT INFORMATION
  Report Type: Spontaneous
  Country: US (occurrence: None)
  Receive Date: 20160406
  Receipt Date: 20160406
  Transmission Date: 20160815
  Serious: Yes (Hospitalization)
  Sender: FDA-Public Use
  Company Number: None

PATIENT
  Age: 42 Year
  Sex: Female

DRUGS (1)
  1. ENBREL [Suspect]
     Active Substance: ETANERCEPT
     Indication: PSORIASIS
     Route: 058
     Dates: start: 20160212, end: 20160311

REACTIONS (6)
  - Skin infection [None]
  - Injection site swelling [None]
  - Pruritus [None]
  - Injection site erythema [None]
  - Injection site warmth [None]
  - Erythema [None]

NARRATIVE: CASE EVENT DATE: 20160314
